FAERS Safety Report 10084921 (Version 2)
Quarter: 2014Q2

REPORT INFORMATION
  Report Type: Spontaneous
  Country: IT (occurrence: IT)
  Receive Date: 20140417
  Receipt Date: 20140417
  Transmission Date: 20141212
  Serious: Yes (Hospitalization)
  Sender: FDA-Public Use
  Company Number: IT-ACTAVIS-2014-02502

PATIENT
  Age: 88 Year
  Sex: Female

DRUGS (7)
  1. REPAGLINIDE (UNKNOWN) [Suspect]
     Indication: DIABETES MELLITUS
     Dosage: UNK
     Route: 048
     Dates: start: 20131115, end: 20131219
  2. SOLDESAM [Concomitant]
     Indication: OSTEOARTHRITIS
     Dosage: 0.2%, 16 DROPS
     Route: 048
     Dates: start: 20130901, end: 20131201
  3. AROMASIN [Concomitant]
     Indication: BREAST CANCER
     Dosage: 25 MG, 1 POSOLOGICAL UNIT
     Route: 048
     Dates: start: 20120101, end: 20131219
  4. KANRENOL [Concomitant]
     Indication: PRODUCT USED FOR UNKNOWN INDICATION
     Dosage: 25 MG, UNK
     Route: 065
  5. LASIX                              /00032601/ [Concomitant]
     Indication: HYPERTENSION
     Dosage: 25 MG, 3 POSOLOGICAL UNITS
     Route: 048
  6. TAVOR                              /00273201/ [Concomitant]
     Indication: PRODUCT USED FOR UNKNOWN INDICATION
     Dosage: 2.5 MG, 1 POSOLOGICAL UNITS
     Route: 048
     Dates: start: 20120626, end: 20131219
  7. CITALOPRAM [Concomitant]
     Indication: DYSTHYMIC DISORDER
     Dosage: UNK
     Route: 065
     Dates: start: 20120626, end: 20131219

REACTIONS (4)
  - Hypoglycaemia [Recovered/Resolved]
  - Sopor [Recovered/Resolved]
  - Drug prescribing error [Recovered/Resolved]
  - Medication error [Recovered/Resolved]
